FAERS Safety Report 10410052 (Version 1)
Quarter: 2014Q3

REPORT INFORMATION
  Report Type: Spontaneous
  Country: US (occurrence: US)
  Receive Date: 20140826
  Receipt Date: 20140826
  Transmission Date: 20150326
  Serious: No
  Sender: FDA-Public Use
  Company Number: US-PFIZER INC-2014233585

PATIENT
  Age: 47 Year
  Sex: Male
  Weight: 77.1 kg

DRUGS (2)
  1. ALAVERT ALLERGY [Suspect]
     Active Substance: LORATADINE
     Indication: HYPERSENSITIVITY
     Dosage: 10 MG, DAILY
     Route: 048
     Dates: start: 201407
  2. ALAVERT ALLERGY [Suspect]
     Active Substance: LORATADINE
     Dosage: UNK
     Route: 048
     Dates: end: 201408

REACTIONS (3)
  - Stomatitis [Recovering/Resolving]
  - Oral discomfort [Unknown]
  - Dry mouth [Not Recovered/Not Resolved]

NARRATIVE: CASE EVENT DATE: 2014
